FAERS Safety Report 20232340 (Version 1)
Quarter: 2021Q4

REPORT INFORMATION
  Report Type: Spontaneous
  Country: CN (occurrence: CN)
  Receive Date: 20211227
  Receipt Date: 20211227
  Transmission Date: 20220303
  Serious: Yes (Hospitalization, Other)
  Sender: FDA-Public Use
  Company Number: CN-ORGANON-O2110CHN000665

PATIENT
  Sex: Female
  Weight: 46 kg

DRUGS (7)
  1. ETORICOXIB [Suspect]
     Active Substance: ETORICOXIB
     Indication: Rheumatoid arthritis
     Dosage: 60 MG, QD
     Route: 048
     Dates: start: 20200801, end: 20210208
  2. CALCITRIOL [Concomitant]
     Active Substance: CALCITRIOL
     Indication: Rheumatoid arthritis
     Dosage: 0.25 UG, QD
     Route: 048
     Dates: start: 20200801, end: 20210208
  3. HYDROXYCHLOROQUINE SULFATE [Suspect]
     Active Substance: HYDROXYCHLOROQUINE SULFATE
     Indication: Rheumatoid arthritis
     Dosage: 0.4 G, QD
     Route: 048
     Dates: start: 20200801, end: 20210208
  4. LEFLUNOMIDE [Suspect]
     Active Substance: LEFLUNOMIDE
     Indication: Rheumatoid arthritis
     Dosage: 10 MG, QD
     Route: 048
     Dates: start: 20200801, end: 20210208
  5. HERBALS [Suspect]
     Active Substance: HERBALS
     Indication: Rheumatoid arthritis
     Dosage: 20 MILLIGRAM, TID
     Route: 048
     Dates: start: 20200801, end: 20210208
  6. ETANERCEPT [Suspect]
     Active Substance: ETANERCEPT
     Indication: Rheumatoid arthritis
     Dosage: 25 MG, Q7D
     Route: 058
     Dates: start: 20200801, end: 20210208
  7. PREDNISONE ACETATE [Suspect]
     Active Substance: PREDNISONE ACETATE
     Indication: Rheumatoid arthritis
     Dosage: 10 MG, QD
     Route: 048
     Dates: start: 20200801, end: 20210208

REACTIONS (6)
  - Vomiting [Recovering/Resolving]
  - Decreased appetite [Recovering/Resolving]
  - Drug-induced liver injury [Recovering/Resolving]
  - Hepatic function abnormal [Recovering/Resolving]
  - Nausea [Recovering/Resolving]
  - Asthenia [Recovering/Resolving]

NARRATIVE: CASE EVENT DATE: 20210202
